FAERS Safety Report 23310260 (Version 2)
Quarter: 2023Q4

REPORT INFORMATION
  Report Type: Spontaneous
  Country: FR (occurrence: FR)
  Receive Date: 20231218
  Receipt Date: 20231226
  Transmission Date: 20240109
  Serious: Yes (Hospitalization, Other)
  Sender: FDA-Public Use
  Company Number: None

PATIENT
  Age: 36 Year
  Sex: Female

DRUGS (5)
  1. CARBOPLATIN [Suspect]
     Active Substance: CARBOPLATIN
     Indication: Triple negative breast cancer
     Dosage: UNK, QW
     Route: 065
  2. CYCLOPHOSPHAMIDE [Suspect]
     Active Substance: CYCLOPHOSPHAMIDE
     Indication: Breast cancer
     Dosage: 280 MILLIGRAM(1000 MG, POUDRE POUR SOLUTION INJECTABLE)
     Route: 042
     Dates: start: 20221220, end: 20230111
  3. EPIRUBICIN HYDROCHLORIDE [Suspect]
     Active Substance: EPIRUBICIN HYDROCHLORIDE
     Indication: Triple negative breast cancer
     Dosage: CONCENTRATION: 2 MG/ML; DOSE:130 MILLIGRAM
     Route: 042
     Dates: start: 20221220, end: 20230111
  4. KEYTRUDA [Suspect]
     Active Substance: PEMBROLIZUMAB
     Indication: Triple negative breast cancer
     Dosage: 200 MILLIGRAM, Q3W ( 25 MG/ML, SOLUTION POUR PERFUSION)
     Route: 042
     Dates: start: 20221220
  5. PACLITAXEL [Suspect]
     Active Substance: PACLITAXEL
     Indication: Triple negative breast cancer
     Dosage: UNK, QW
     Route: 065

REACTIONS (7)
  - Oesophageal candidiasis [Recovered/Resolved]
  - Pancytopenia [Unknown]
  - Laryngopharyngitis [Recovered/Resolved]
  - Febrile bone marrow aplasia [Recovered/Resolved]
  - Pneumonia [Recovered/Resolved]
  - Thrombocytopenia [Unknown]
  - Anaemia [Unknown]

NARRATIVE: CASE EVENT DATE: 20221227
